FAERS Safety Report 7353726-4 (Version None)
Quarter: 2011Q1

REPORT INFORMATION
  Report Type: 
  Country: None (occurrence: None)
  Receive Date: 20110303
  Receipt Date: 20100128
  Transmission Date: 20110831
  Serious: Yes (Hospitalization)
  Sender: FDA-Public Use
  Company Number: WAES 1002USA00900

PATIENT
  Age: 65 Year
  Sex: Male

DRUGS (9)
  1. PRINIVIL [Suspect]
     Indication: PRODUCT USED FOR UNKNOWN INDICATION
     Dosage: 20 MG/PO
     Route: 048
  2. ONGLYZA [Suspect]
     Indication: DIABETES MELLITUS
     Dosage: PO
     Route: 048
  3. ACTOS [Concomitant]
  4. LOPRESSOR [Concomitant]
  5. LYRICA [Concomitant]
  6. PREVACID [Concomitant]
  7. ASPIRIN [Concomitant]
  8. GLIPIZIDE [Concomitant]
  9. FLEXERIL [Concomitant]

REACTIONS (1)
  - PANCREATITIS ACUTE [None]
